FAERS Safety Report 5318969-X (Version None)
Quarter: 2007Q2

REPORT INFORMATION
  Report Type: 
  Country: None (occurrence: None)
  Receive Date: 20070508
  Receipt Date: 20070504
  Transmission Date: 20071010
  Serious: Yes (Other)
  Sender: FDA-Public Use
  Company Number: BR-BRISTOL-MYERS SQUIBB COMPANY-13770250

PATIENT
  Age: 66 Year
  Sex: Female

DRUGS (4)
  1. ABATACEPT [Suspect]
     Indication: RHEUMATOID ARTHRITIS
     Route: 042
     Dates: start: 20030315, end: 20070503
  2. METHOTREXATE [Concomitant]
     Dates: start: 20030903
  3. PREDNISONE TAB [Concomitant]
     Dates: start: 20040416
  4. ABLOK PLUS [Concomitant]
     Dates: start: 20050512

REACTIONS (2)
  - BRONCHOSPASM [None]
  - PYREXIA [None]
